FAERS Safety Report 7057559-8 (Version None)
Quarter: 2010Q4

REPORT INFORMATION
  Report Type: 
  Country: None (occurrence: None)
  Receive Date: 20101022
  Receipt Date: 20101011
  Transmission Date: 20110411
  Serious: Yes (Hospitalization, Disabling)
  Sender: FDA-Public Use
  Company Number: BJ-SANOFI-AVENTIS-2010SA062158

PATIENT
  Age: 6 Year
  Sex: Male

DRUGS (6)
  1. RIFAMPICIN [Suspect]
     Dates: start: 20070522
  2. CEFTRIAXONE [Suspect]
  3. AMOXICILLIN [Suspect]
  4. METRONIDAZOLE [Suspect]
  5. GENTAMICIN [Suspect]
  6. STREPTOMYCIN [Suspect]
     Dates: start: 20070522

REACTIONS (7)
  - ANAEMIA [None]
  - DRUG INEFFECTIVE [None]
  - EOSINOPHILIA [None]
  - IMMUNE RECONSTITUTION SYNDROME [None]
  - MYCOBACTERIUM ULCERANS INFECTION [None]
  - PYREXIA [None]
  - WHITE BLOOD CELL COUNT INCREASED [None]
